FAERS Safety Report 17215872 (Version 1)
Quarter: 2019Q4

REPORT INFORMATION
  Report Type: Spontaneous
  Country: US (occurrence: US)
  Receive Date: 20191230
  Receipt Date: 20191230
  Transmission Date: 20200122
  Serious: Yes (Hospitalization)
  Sender: FDA-Public Use
  Company Number: US-TEVA-2019-US-1160090

PATIENT
  Age: 3 Year
  Sex: Male
  Weight: 20 kg

DRUGS (3)
  1. HYDROMORPHONE [Suspect]
     Active Substance: HYDROMORPHONE
     Indication: POSTOPERATIVE ANALGESIA
     Dosage: ADMINISTERED OVER POST-OPERATIVE DAYS 2-26; MAXIMUM DOSE 0.2 MG/H BASAL WITH 0.2 MG BOLUS AS REQU...
     Route: 065
  2. FENTANYL. [Suspect]
     Active Substance: FENTANYL
     Indication: POSTOPERATIVE ANALGESIA
     Dosage: ADMINISTERED OVER POST-OPERATIVE DAYS 0-2; MAXIMUM DOSE 5 MCG/KG/H
     Route: 041
  3. DEXMEDETOMIDINE. [Concomitant]
     Active Substance: DEXMEDETOMIDINE
     Indication: POSTOPERATIVE ANALGESIA
     Dosage: ADMINISTERED OVER POST-OPERATIVE DAYS 0-23; MAXIMUM DOSE 1 MCG/KG/H; CONTINUED THROUGHOUT NEOSTIG...
     Route: 065

REACTIONS (1)
  - Postoperative ileus [Recovered/Resolved]
